FAERS Safety Report 21620705 (Version 1)
Quarter: 2022Q4

REPORT INFORMATION
  Report Type: Spontaneous
  Country: FR (occurrence: FR)
  Receive Date: 20221121
  Receipt Date: 20221121
  Transmission Date: 20230112
  Serious: Yes (Hospitalization, Other)
  Sender: FDA-Public Use
  Company Number: None

PATIENT
  Age: 48 Year
  Sex: Female

DRUGS (1)
  1. SPORANOX [Suspect]
     Active Substance: ITRACONAZOLE
     Indication: Aspergillus infection
     Dosage: 10 TIMES THE USUAL DOSE
     Route: 048
     Dates: start: 20221022, end: 20221022

REACTIONS (5)
  - Off label use [Recovering/Resolving]
  - Hepatic cytolysis [Recovered/Resolved]
  - Accidental overdose [Recovering/Resolving]
  - Bradycardia [Recovered/Resolved]
  - Diarrhoea [Recovered/Resolved]

NARRATIVE: CASE EVENT DATE: 20221022
